FAERS Safety Report 9537854 (Version 3)
Quarter: 2014Q1

REPORT INFORMATION
  Report Type: Report from Study
  Country: US (occurrence: US)
  Receive Date: 20130919
  Receipt Date: 20140203
  Transmission Date: 20141002
  Serious: Yes (Hospitalization, Other)
  Sender: FDA-Public Use
  Company Number: US-ABBVIE-13P-163-1144916-00

PATIENT
  Age: 40 Year
  Sex: Male
  Weight: 112.14 kg

DRUGS (9)
  1. HUMIRA [Suspect]
     Indication: CROHN^S DISEASE
     Dates: start: 20130419
  2. ALBUTEROL [Concomitant]
     Indication: ASTHMA
     Dosage: INHALER
     Route: 055
  3. FLONASE [Concomitant]
     Indication: SLEEP APNOEA SYNDROME
     Dosage: 1 SQUIRT EACH NARE AT EVERY BEDTIME
     Route: 045
  4. ADVAIR [Concomitant]
     Indication: ASTHMA
     Dosage: INHALER
     Route: 055
  5. HYOSCYAMINE [Concomitant]
     Indication: MUSCLE SPASMS
  6. PROTONIX [Concomitant]
     Indication: GASTROOESOPHAGEAL REFLUX DISEASE
  7. ZOFRAN [Concomitant]
     Indication: NAUSEA
  8. BYSTOLIC [Concomitant]
     Indication: HYPERTENSION
  9. KEPPRA [Concomitant]
     Indication: CONVULSION
     Dosage: 500MG IN AM + 1000MG AT BEDTIME

REACTIONS (9)
  - Dizziness [Recovering/Resolving]
  - Rectal haemorrhage [Recovering/Resolving]
  - Abdominal pain [Recovering/Resolving]
  - Nausea [Recovering/Resolving]
  - Haemorrhoids [Unknown]
  - Hypophagia [Recovering/Resolving]
  - Gastric disorder [Unknown]
  - Blood glucose increased [Unknown]
  - Constipation [Unknown]
